FAERS Safety Report 24319367 (Version 6)
Quarter: 2024Q4

REPORT INFORMATION
  Report Type: Spontaneous
  Country: US (occurrence: US)
  Receive Date: 20240914
  Receipt Date: 20241113
  Transmission Date: 20250114
  Serious: Yes (Other)
  Sender: ABBVIE
  Company Number: US-ABBVIE-5917105

PATIENT
  Age: 54 Year
  Sex: Female
  Weight: 54 kg

DRUGS (6)
  1. RESTASIS [Suspect]
     Active Substance: CYCLOSPORINE
     Indication: Dry eye
     Dosage: FORM STRENGTH: 0.5 MG/ML
     Route: 047
     Dates: start: 2024
  2. RESTASIS [Suspect]
     Active Substance: CYCLOSPORINE
     Indication: Eye disorder
     Dosage: FORM STRENGTH: 0.5 MG/ML
     Route: 047
     Dates: start: 2023, end: 2024
  3. RESTASIS [Suspect]
     Active Substance: CYCLOSPORINE
     Dosage: FORM STRENGTH: 0.5 MG/ML
     Route: 047
     Dates: start: 20170914, end: 201809
  4. GLUCOSAMINE [Concomitant]
     Active Substance: GLUCOSAMINE
     Indication: Arthropathy
  5. VITAMIN D3 [Concomitant]
     Active Substance: CHOLECALCIFEROL
     Indication: Vitamin supplementation
  6. ALENDRONATE [Concomitant]
     Active Substance: ALENDRONATE SODIUM
     Indication: Osteoporosis

REACTIONS (12)
  - Macular degeneration [Not Recovered/Not Resolved]
  - Ocular discomfort [Recovered/Resolved]
  - Dry mouth [Not Recovered/Not Resolved]
  - Eye pain [Recovered/Resolved]
  - Eye pruritus [Recovered/Resolved]
  - Eye pruritus [Recovered/Resolved]
  - Ocular discomfort [Recovered/Resolved]
  - Sjogren^s syndrome [Not Recovered/Not Resolved]
  - Ocular hyperaemia [Recovered/Resolved]
  - Eye pain [Recovered/Resolved]
  - Ocular hyperaemia [Recovered/Resolved]
  - Unevaluable event [Not Recovered/Not Resolved]

NARRATIVE: CASE EVENT DATE: 20170101
